FAERS Safety Report 4826880-3 (Version None)
Quarter: 2005Q4

REPORT INFORMATION
  Report Type: 
  Country: None (occurrence: None)
  Receive Date: 20051114
  Receipt Date: 20051107
  Transmission Date: 20060501
  Serious: Yes (Death)
  Sender: FDA-Public Use
  Company Number: US-BOEHRINGER INGELHEIM PHARMACEUTICALS, INC.-2005-DE-04837GD

PATIENT
  Age: 36 Year

DRUGS (3)
  1. DILTIAZEM [Suspect]
     Route: 048
  2. CLONIDINE [Suspect]
     Route: 048
  3. METOPROLOL [Suspect]
     Route: 048

REACTIONS (5)
  - CARDIAC ARREST [None]
  - COMPLETED SUICIDE [None]
  - DRUG ABUSER [None]
  - RESPIRATORY ARREST [None]
  - SUICIDE ATTEMPT [None]
